FAERS Safety Report 14391536 (Version 1)
Quarter: 2018Q1

REPORT INFORMATION
  Report Type: Spontaneous
  Country: JP (occurrence: JP)
  Receive Date: 20180116
  Receipt Date: 20180116
  Transmission Date: 20180509
  Serious: Yes (Hospitalization)
  Sender: FDA-Public Use
  Company Number: PHJP2018JP001011

PATIENT
  Age: 30 Year
  Sex: Male

DRUGS (1)
  1. CARBAMAZEPINE. [Suspect]
     Active Substance: CARBAMAZEPINE
     Indication: EPILEPSY
     Dosage: UNK
     Route: 065

REACTIONS (11)
  - Pyrexia [Unknown]
  - Malaise [Unknown]
  - Histiocytosis haematophagic [Recovered/Resolved]
  - Drug reaction with eosinophilia and systemic symptoms [Unknown]
  - Rash generalised [Unknown]
  - C-reactive protein increased [Unknown]
  - Human herpes virus 6 serology positive [Recovered/Resolved]
  - Liver disorder [Unknown]
  - Mucocutaneous rash [Unknown]
  - Thrombocytopenia [Unknown]
  - Neutropenia [Unknown]
